FAERS Safety Report 25490870 (Version 1)
Quarter: 2025Q2

REPORT INFORMATION
  Report Type: Spontaneous
  Country: CA (occurrence: CA)
  Receive Date: 20250628
  Receipt Date: 20250628
  Transmission Date: 20250716
  Serious: Yes (Other)
  Sender: TEVA
  Company Number: CA-TEVA-VS-3343746

PATIENT
  Age: 3 Year
  Sex: Male

DRUGS (3)
  1. METHOTREXATE SODIUM [Suspect]
     Active Substance: METHOTREXATE SODIUM
     Indication: B-cell type acute leukaemia
     Route: 037
  2. METHOTREXATE SODIUM [Suspect]
     Active Substance: METHOTREXATE SODIUM
     Indication: B-cell type acute leukaemia
     Route: 042
  3. METHOTREXATE SODIUM [Suspect]
     Active Substance: METHOTREXATE SODIUM
     Indication: B-cell type acute leukaemia
     Route: 048

REACTIONS (7)
  - Lennox-Gastaut syndrome [Unknown]
  - Atonic seizures [Unknown]
  - Neurotoxicity [Unknown]
  - Tonic convulsion [Unknown]
  - Aggression [Unknown]
  - Confusional state [Unknown]
  - Petit mal epilepsy [Unknown]
